FAERS Safety Report 5761555-8 (Version None)
Quarter: 2008Q2

REPORT INFORMATION
  Report Type: 
  Country: None (occurrence: None)
  Receive Date: 20080606
  Receipt Date: 20080526
  Transmission Date: 20081010
  Serious: Yes (Death, Life-Threatening, Hospitalization)
  Sender: FDA-Public Use
  Company Number: NL-PFIZER INC-2008044914

PATIENT
  Sex: Male

DRUGS (9)
  1. SU-011,248 [Suspect]
     Indication: SALIVARY GLAND CANCER
     Route: 048
     Dates: start: 20070906, end: 20080522
  2. IRINOTECAN HCL [Suspect]
     Indication: SALIVARY GLAND CANCER
     Route: 042
     Dates: start: 20070912, end: 20080516
  3. HYDROCHLOROTHIAZIDE [Concomitant]
     Route: 048
     Dates: start: 20070401, end: 20080525
  4. METOPROLOL TARTRATE [Concomitant]
     Route: 048
     Dates: start: 20070401, end: 20080525
  5. PRAVASTATIN [Concomitant]
     Route: 048
     Dates: start: 20070701, end: 20080525
  6. ONDANSETRON [Concomitant]
     Route: 048
     Dates: start: 20070913, end: 20080525
  7. METOCLOPRAMIDE [Concomitant]
     Route: 048
     Dates: start: 20070913, end: 20080525
  8. PANTOPRAZOLE [Concomitant]
     Route: 048
     Dates: start: 20070701, end: 20080525
  9. ULCOGANT [Concomitant]
     Route: 048
     Dates: start: 20080506, end: 20080525

REACTIONS (1)
  - FEBRILE NEUTROPENIA [None]
